FAERS Safety Report 6404260-7 (Version None)
Quarter: 2009Q4

REPORT INFORMATION
  Report Type: 
  Country: None (occurrence: None)
  Receive Date: 20091016
  Receipt Date: 20091007
  Transmission Date: 20100525
  Serious: Yes (Hospitalization)
  Sender: FDA-Public Use
  Company Number: A0805927A

PATIENT
  Sex: Male
  Weight: 77 kg

DRUGS (4)
  1. ELTROMBOPAG [Suspect]
     Indication: THROMBOCYTOPENIA
     Dosage: 25MG PER DAY
     Route: 048
     Dates: start: 20081226, end: 20090203
  2. PEG-INTRON [Suspect]
     Route: 058
     Dates: start: 20090203
  3. REBETOL [Suspect]
     Route: 048
     Dates: start: 20090203
  4. PLACEBO [Suspect]
     Indication: THROMBOCYTOPENIA
     Route: 048
     Dates: start: 20090204

REACTIONS (9)
  - CELLULITIS [None]
  - ERYTHEMA [None]
  - HAEMOGLOBIN DECREASED [None]
  - OEDEMA PERIPHERAL [None]
  - PAIN IN EXTREMITY [None]
  - PHLEBITIS [None]
  - PLATELET COUNT DECREASED [None]
  - PYREXIA [None]
  - WHITE BLOOD CELL COUNT DECREASED [None]
